FAERS Safety Report 8872054 (Version 1)
Quarter: 2012Q4

REPORT INFORMATION
  Report Type: 
  Country: US (occurrence: US)
  Receive Date: 20121023
  Receipt Date: 20121023
  Transmission Date: 20130627
  Serious: No
  Sender: FDA-Public Use
  Company Number: US-ASTELLAS-2012US005989

PATIENT
  Sex: Male
  Weight: 63 kg

DRUGS (6)
  1. PROGRAF [Suspect]
     Indication: AUTOIMMUNE HEPATITIS
     Dosage: 2 mg, bid
     Route: 048
     Dates: start: 20120328
  2. PROGRAF [Suspect]
     Indication: HEPATIC FAILURE
  3. CELLCEPT                           /01275102/ [Concomitant]
     Indication: AUTOIMMUNE HEPATITIS
     Dosage: 1000 mg, bid
     Route: 048
     Dates: start: 20120328
  4. CELLCEPT                           /01275102/ [Concomitant]
     Indication: HEPATIC FAILURE
  5. URSODIOL [Concomitant]
     Indication: ENZYME LEVEL INCREASED
     Dosage: 300 mg, UID/QD
     Route: 048
     Dates: start: 20120328
  6. PEPCID                             /00706001/ [Concomitant]
     Indication: GASTRITIS
     Dosage: 20 mg, UID/QD
     Route: 048
     Dates: start: 20120328

REACTIONS (1)
  - Off label use [Unknown]
